FAERS Safety Report 6508801-0 (Version None)
Quarter: 2009Q4

REPORT INFORMATION
  Report Type: 
  Country: None (occurrence: None)
  Receive Date: 20091221
  Receipt Date: 20090811
  Transmission Date: 20100525
  Serious: No
  Sender: FDA-Public Use
  Company Number: US-ASTRAZENECA-2009SE07548

PATIENT
  Sex: Female

DRUGS (5)
  1. CRESTOR [Suspect]
     Dosage: 3 DOSES OF CRESTOR 5 MG
     Route: 048
  2. TOPROL-XL [Concomitant]
  3. MAXZIDE [Concomitant]
  4. VITAMIN E [Concomitant]
  5. ASPIRIN [Concomitant]

REACTIONS (1)
  - OROPHARYNGEAL PAIN [None]
